FAERS Safety Report 16174713 (Version 4)
Quarter: 2019Q2

REPORT INFORMATION
  Report Type: Report from Study
  Country: US (occurrence: US)
  Receive Date: 20190409
  Receipt Date: 20190514
  Transmission Date: 20190711
  Serious: Yes (Other)
  Sender: FDA-Public Use
  Company Number: US-BAYER-2019-057388

PATIENT
  Age: 58 Year
  Sex: Male

DRUGS (2)
  1. STIVARGA [Suspect]
     Active Substance: REGORAFENIB
     Indication: COLORECTAL CANCER
     Dosage: DAILY DOSE 160 MG FOR 21 DAYS OF 28 DAY
     Route: 048
     Dates: start: 20190311, end: 20190319
  2. STIVARGA [Suspect]
     Active Substance: REGORAFENIB
     Indication: COLORECTAL CANCER
     Dosage: DAILY DOSE 80 MG 3 WEEKS ON 1 WEEK OFF
     Route: 048
     Dates: start: 20190327, end: 20190503

REACTIONS (11)
  - Drug intolerance [Not Recovered/Not Resolved]
  - Fatigue [None]
  - Pain in extremity [Recovering/Resolving]
  - Insomnia [None]
  - Gait disturbance [Not Recovered/Not Resolved]
  - Fatigue [None]
  - Neuropathy peripheral [Not Recovered/Not Resolved]
  - Drug ineffective [Not Recovered/Not Resolved]
  - Neuropathy peripheral [Not Recovered/Not Resolved]
  - Pain [None]
  - Musculoskeletal pain [Recovering/Resolving]

NARRATIVE: CASE EVENT DATE: 201903
